FAERS Safety Report 5599266-4 (Version None)
Quarter: 2008Q1

REPORT INFORMATION
  Report Type: 
  Country: None (occurrence: None)
  Receive Date: 20080117
  Receipt Date: 20080107
  Transmission Date: 20080703
  Serious: Yes (Other)
  Sender: FDA-Public Use
  Company Number: US-JNJFOC-20071203731

PATIENT
  Age: 62 Year
  Sex: Male
  Weight: 91.6266 kg

DRUGS (9)
  1. DACOGEN [Suspect]
     Indication: MYELODYSPLASTIC SYNDROME
     Dosage: 42, MG, 1 IN 1 D, INTRAVENOUS; 32 MG, 1 IN 1 DAY, INTRAVENOUS
     Route: 042
     Dates: start: 20070806, end: 20070810
  2. DACOGEN [Suspect]
     Indication: MYELODYSPLASTIC SYNDROME
     Dosage: 42, MG, 1 IN 1 D, INTRAVENOUS; 32 MG, 1 IN 1 DAY, INTRAVENOUS
     Route: 042
     Dates: start: 20071015, end: 20071019
  3. SYNTHROID [Concomitant]
  4. PRILOSEC [Concomitant]
  5. PROCTOSAL (ALL OTHER THERAPEUTIC PRODUCTS) [Concomitant]
  6. METOPROLOL TARTRATE [Concomitant]
  7. FENTANYL [Concomitant]
  8. PHOSPHORUS (PHOSPHORUS) [Concomitant]
  9. OXYCODONE HCL [Concomitant]

REACTIONS (6)
  - CELLULITIS [None]
  - CULTURE WOUND POSITIVE [None]
  - HAEMATOMA [None]
  - OPEN WOUND [None]
  - PANCYTOPENIA [None]
  - STAPHYLOCOCCAL INFECTION [None]
